FAERS Safety Report 10721078 (Version 2)
Quarter: 2015Q1

REPORT INFORMATION
  Report Type: Spontaneous
  Country: US (occurrence: US)
  Receive Date: 20150119
  Receipt Date: 20150126
  Transmission Date: 20150721
  Serious: Yes (Death)
  Sender: FDA-Public Use
  Company Number: US-RECORDATI RARE DISEASES-US-R13005-15-00002

PATIENT
  Age: 49 Year
  Sex: Male

DRUGS (5)
  1. ETOPOSIDE. [Concomitant]
     Active Substance: ETOPOSIDE
     Indication: NATURAL KILLER-CELL LEUKAEMIA
     Route: 065
  2. METHOTREXATE [Concomitant]
     Active Substance: METHOTREXATE
     Indication: NATURAL KILLER-CELL LEUKAEMIA
     Route: 065
  3. DEXAMETHASONE. [Concomitant]
     Active Substance: DEXAMETHASONE
     Indication: NATURAL KILLER-CELL LEUKAEMIA
     Route: 065
  4. IFOSFAMIDE. [Concomitant]
     Active Substance: IFOSFAMIDE
     Indication: NATURAL KILLER-CELL LEUKAEMIA
     Route: 065
  5. ELSPAR [Suspect]
     Active Substance: ASPARAGINASE
     Indication: NATURAL KILLER-CELL LEUKAEMIA
     Route: 065

REACTIONS (17)
  - Coagulopathy [Fatal]
  - Gallbladder polyp [None]
  - Peritonitis [None]
  - Cardiac arrest [Fatal]
  - Cholestasis [Fatal]
  - Hepatic rupture [Fatal]
  - Cholelithiasis [None]
  - Intra-abdominal haemorrhage [None]
  - Haemangioma of liver [None]
  - Postoperative fever [None]
  - Hepatic steatosis [Fatal]
  - Haemodynamic instability [None]
  - Duodenal ulcer perforation [None]
  - Bone marrow leukaemic cell infiltration [None]
  - Toxicity to various agents [None]
  - Hypofibrinogenaemia [Fatal]
  - Leukaemic infiltration pulmonary [None]
